FAERS Safety Report 4653184-4 (Version None)
Quarter: 2005Q2

REPORT INFORMATION
  Report Type: 
  Country: None (occurrence: None)
  Receive Date: 20050503
  Receipt Date: 20050427
  Transmission Date: 20051028
  Serious: No
  Sender: FDA-Public Use
  Company Number: S05-USA-02180-01

PATIENT
  Age: 50 Year
  Sex: Male

DRUGS (6)
  1. CELEXA [Suspect]
     Dosage: 20 MG QD PO
     Route: 048
     Dates: start: 20030101, end: 20030101
  2. CELEXA [Suspect]
     Dosage: 40 MG QD PO
     Route: 048
     Dates: start: 20030101, end: 20030101
  3. CELEXA [Suspect]
     Dosage: 10 MG QD PO
     Route: 048
     Dates: start: 20030101, end: 20030101
  4. CELEXA [Suspect]
     Dosage: 20 MG QD PO
     Route: 048
     Dates: start: 20030101, end: 20030101
  5. CELEXA [Suspect]
     Dosage: 30 MG QD PO
     Route: 048
     Dates: start: 20030101, end: 20030101
  6. DILANTIN [Suspect]
     Indication: CONVULSION

REACTIONS (2)
  - CONVULSION [None]
  - DRUG TOXICITY [None]
